FAERS Safety Report 4854590-5 (Version None)
Quarter: 2005Q4

REPORT INFORMATION
  Report Type: 
  Country: None (occurrence: None)
  Receive Date: 20051213
  Receipt Date: 20051130
  Transmission Date: 20060501
  Serious: Yes (Other)
  Sender: FDA-Public Use
  Company Number: 2005164739

PATIENT
  Sex: Male

DRUGS (5)
  1. VIAGRA [Suspect]
     Indication: ILL-DEFINED DISORDER
  2. COREG [Concomitant]
  3. INSULIN [Concomitant]
  4. DIURETICS (DIURETICS) [Concomitant]
  5. ALL OTHER THERAPEUTIC PRODUCTS (ALLOTHER THERAPEUTIC PRODUCTS) [Concomitant]

REACTIONS (3)
  - CARDIAC FAILURE CONGESTIVE [None]
  - DIABETES MELLITUS [None]
  - DRUG INEFFECTIVE [None]
